FAERS Safety Report 24572084 (Version 1)
Quarter: 2024Q4

REPORT INFORMATION
  Report Type: Spontaneous
  Country: US (occurrence: None)
  Receive Date: 20241031
  Receipt Date: 20241031
  Transmission Date: 20250114
  Serious: Yes (Life-Threatening)
  Sender: Public
  Company Number: None

PATIENT
  Age: 64 Year
  Sex: Male
  Weight: 62 kg

DRUGS (2)
  1. OXALIPLATIN [Suspect]
     Active Substance: OXALIPLATIN
     Indication: Chemotherapy
     Dosage: OTHER FREQUENCY : OTHER;?
     Route: 042
     Dates: start: 20240617, end: 20240617
  2. TRASTUZUMAB-DTTB [Suspect]
     Active Substance: TRASTUZUMAB-DTTB
     Dosage: OTHER FREQUENCY : OTHER;?
     Route: 042
     Dates: start: 20240617, end: 20240617

REACTIONS (7)
  - Dyspnoea [None]
  - Nausea [None]
  - Vomiting [None]
  - Diarrhoea [None]
  - Hyperhidrosis [None]
  - Flushing [None]
  - Infusion related reaction [None]

NARRATIVE: CASE EVENT DATE: 20240617
